FAERS Safety Report 24232907 (Version 1)
Quarter: 2024Q3

REPORT INFORMATION
  Report Type: Spontaneous
  Country: US (occurrence: None)
  Receive Date: 20240820
  Receipt Date: 20240820
  Transmission Date: 20241016
  Serious: No
  Sender: Public
  Company Number: None

PATIENT
  Age: 25 Year

DRUGS (1)
  1. INSULIN GLARGINE [Suspect]
     Active Substance: INSULIN GLARGINE
     Indication: Diabetes mellitus
     Route: 058
     Dates: start: 20240814, end: 20240814

REACTIONS (5)
  - Product dispensing error [None]
  - Wrong product administered [None]
  - Product packaging issue [None]
  - Product appearance confusion [None]
  - Product container seal issue [None]

NARRATIVE: CASE EVENT DATE: 20240814
